FAERS Safety Report 17672988 (Version 1)
Quarter: 2020Q2

REPORT INFORMATION
  Report Type: Other
  Country: US (occurrence: US)
  Receive Date: 20200415
  Receipt Date: 20200415
  Transmission Date: 20200713
  Serious: Yes (Other)
  Sender: FDA-Public Use
  Company Number: US-ALKERMES INC.-ALK-2019-006093

PATIENT
  Age: 40 Year
  Sex: Female
  Weight: 81 kg

DRUGS (1)
  1. VIVITROL [Suspect]
     Active Substance: NALTREXONE
     Indication: ALCOHOL ABUSE
     Dosage: 380 MG, QMO
     Route: 030
     Dates: start: 20190702, end: 20190723

REACTIONS (3)
  - Injection site induration [Recovered/Resolved]
  - Skin tightness [Recovered/Resolved]
  - Injection site reaction [Recovered/Resolved]

NARRATIVE: CASE EVENT DATE: 20190723
